FAERS Safety Report 14501669 (Version 41)
Quarter: 2024Q3

REPORT INFORMATION
  Report Type: Spontaneous
  Country: CA (occurrence: CA)
  Receive Date: 20180207
  Receipt Date: 20240820
  Transmission Date: 20241017
  Serious: Yes (Hospitalization, Disabling, Other)
  Sender: BRISTOL MYERS SQUIBB
  Company Number: CA-BRISTOL-MYERS SQUIBB COMPANY-BMS-2018-007157

PATIENT
  Age: 63 Year
  Sex: Female

DRUGS (162)
  1. ORENCIA [Suspect]
     Active Substance: ABATACEPT
     Indication: Rheumatoid arthritis
     Route: 042
  2. ORENCIA [Suspect]
     Active Substance: ABATACEPT
     Indication: Rheumatoid arthritis
  3. FOLIC ACID [Concomitant]
     Active Substance: FOLIC ACID
     Indication: Product used for unknown indication
     Dosage: 5 MILLIGRAM, 2 TIMES/WK
  4. SULFASALAZINE [Concomitant]
     Active Substance: SULFASALAZINE
     Indication: Rheumatoid arthritis
     Dosage: 500 MILLIGRAM, BID
     Route: 048
  5. SULFASALAZINE [Concomitant]
     Active Substance: SULFASALAZINE
     Dosage: 500 MILLIGRAM, BID
     Route: 048
  6. SULFASALAZINE [Concomitant]
     Active Substance: SULFASALAZINE
     Dosage: 1000 MILLIGRAM
     Route: 048
  7. SULFASALAZINE [Concomitant]
     Active Substance: SULFASALAZINE
     Dosage: 100 MILLIGRAM, QD
     Route: 048
  8. SULFASALAZINE [Concomitant]
     Active Substance: SULFASALAZINE
     Dosage: 1000 MILLIGRAM, QD
     Route: 048
  9. SULFASALAZINE [Concomitant]
     Active Substance: SULFASALAZINE
     Route: 048
  10. ARAVA [Concomitant]
     Active Substance: LEFLUNOMIDE
     Indication: Rheumatoid arthritis
     Dosage: 20 MILLIGRAM, QD
     Route: 048
  11. ATENOLOL [Concomitant]
     Active Substance: ATENOLOL
     Indication: Product used for unknown indication
     Dosage: 25 MILLIGRAM, QD
  12. ATENOLOL [Concomitant]
     Active Substance: ATENOLOL
     Dosage: 20 MILLIGRAM, QD
  13. ATENOLOL [Concomitant]
     Active Substance: ATENOLOL
     Dosage: 25 MILLIGRAM, QD
     Route: 048
  14. ATENOLOL [Concomitant]
     Active Substance: ATENOLOL
     Route: 048
  15. ATENOLOL [Concomitant]
     Active Substance: ATENOLOL
     Route: 048
  16. ATENOLOL [Concomitant]
     Active Substance: ATENOLOL
  17. ATENOLOL [Concomitant]
     Active Substance: ATENOLOL
  18. ATENOLOL [Concomitant]
     Active Substance: ATENOLOL
     Indication: Product used for unknown indication
     Dosage: 25 MILLIGRAM, QD
     Route: 048
  19. ATENOLOL [Concomitant]
     Active Substance: ATENOLOL
     Dosage: 20 MILLIGRAM
     Route: 048
  20. ATENOLOL [Concomitant]
     Active Substance: ATENOLOL
  21. ATENOLOL [Concomitant]
     Active Substance: ATENOLOL
     Route: 048
  22. ENBREL [Concomitant]
     Active Substance: BENZYL ALCOHOL\ETANERCEPT
     Indication: Rheumatoid arthritis
     Dosage: UNK
     Route: 058
  23. ENBREL [Concomitant]
     Active Substance: BENZYL ALCOHOL\ETANERCEPT
     Dosage: UNK
  24. HUMIRA [Concomitant]
     Active Substance: ADALIMUMAB
     Indication: Rheumatoid arthritis
     Dosage: UNK
     Route: 058
  25. HUMIRA [Concomitant]
     Active Substance: ADALIMUMAB
     Indication: Uveitis
     Route: 058
  26. HUMIRA [Concomitant]
     Active Substance: ADALIMUMAB
     Indication: Juvenile idiopathic arthritis
     Route: 058
  27. ASCORBIC ACID\FERROUS FUMARATE\FOLIC ACID [Concomitant]
     Active Substance: ASCORBIC ACID\FERROUS FUMARATE\FOLIC ACID
     Indication: Product used for unknown indication
     Dosage: 1 DOSAGE FORM, 1 EVERY 24 HRS
  28. ASCORBIC ACID\FERROUS FUMARATE\FOLIC ACID [Concomitant]
     Active Substance: ASCORBIC ACID\FERROUS FUMARATE\FOLIC ACID
  29. ASCORBIC ACID\FERROUS FUMARATE\FOLIC ACID [Concomitant]
     Active Substance: ASCORBIC ACID\FERROUS FUMARATE\FOLIC ACID
  30. PANTOPRAZOLE SODIUM [Concomitant]
     Active Substance: PANTOPRAZOLE SODIUM
     Indication: Rheumatoid arthritis
     Dosage: 40 MILLIGRAM, QD
     Route: 048
  31. PANTOPRAZOLE SODIUM [Concomitant]
     Active Substance: PANTOPRAZOLE SODIUM
     Dosage: 40 MILLIGRAM, QD
  32. PANTOPRAZOLE SODIUM [Concomitant]
     Active Substance: PANTOPRAZOLE SODIUM
  33. PANTOPRAZOLE SODIUM [Concomitant]
     Active Substance: PANTOPRAZOLE SODIUM
     Route: 048
  34. PLAQUENIL [Concomitant]
     Active Substance: HYDROXYCHLOROQUINE SULFATE
     Indication: Product used for unknown indication
     Dosage: 400 MILLIGRAM, QD
  35. PLAQUENIL [Concomitant]
     Active Substance: HYDROXYCHLOROQUINE SULFATE
     Dosage: 200 MILLIGRAM, BID
  36. PLAQUENIL [Concomitant]
     Active Substance: HYDROXYCHLOROQUINE SULFATE
     Dosage: 40 MILLIGRAM, QD
  37. REMICADE [Concomitant]
     Active Substance: INFLIXIMAB
     Indication: Rheumatoid arthritis
     Dosage: POWDER FOR SOLUTION INTRAVENOUS
     Route: 042
  38. HYDROXYCHLOROQUINE SULFATE [Concomitant]
     Active Substance: HYDROXYCHLOROQUINE SULFATE
     Indication: Rheumatoid arthritis
     Dosage: 40 MILLIGRAM, QD
  39. HYDROXYCHLOROQUINE SULFATE [Concomitant]
     Active Substance: HYDROXYCHLOROQUINE SULFATE
     Dosage: 400 MILLIGRAM, QD
     Route: 048
  40. HYDROXYCHLOROQUINE SULFATE [Concomitant]
     Active Substance: HYDROXYCHLOROQUINE SULFATE
     Dosage: 200 MILLIGRAM, BID
  41. HYDROXYCHLOROQUINE SULFATE [Concomitant]
     Active Substance: HYDROXYCHLOROQUINE SULFATE
     Dosage: 400 MILLIGRAM, BID
  42. HYDROXYCHLOROQUINE SULFATE [Concomitant]
     Active Substance: HYDROXYCHLOROQUINE SULFATE
     Dosage: 40 MILLIGRAM, BID
  43. HYDROXYCHLOROQUINE SULFATE [Concomitant]
     Active Substance: HYDROXYCHLOROQUINE SULFATE
     Dosage: 200 MILLIGRAM, BID
  44. HYDROXYCHLOROQUINE SULFATE [Concomitant]
     Active Substance: HYDROXYCHLOROQUINE SULFATE
  45. HYDROXYCHLOROQUINE SULFATE [Concomitant]
     Active Substance: HYDROXYCHLOROQUINE SULFATE
  46. HYDROXYCHLOROQUINE SULFATE [Concomitant]
     Active Substance: HYDROXYCHLOROQUINE SULFATE
  47. HYDROXYCHLOROQUINE SULFATE [Concomitant]
     Active Substance: HYDROXYCHLOROQUINE SULFATE
  48. HYDROXYCHLOROQUINE SULFATE [Concomitant]
     Active Substance: HYDROXYCHLOROQUINE SULFATE
  49. HYDROXYCHLOROQUINE SULFATE [Concomitant]
     Active Substance: HYDROXYCHLOROQUINE SULFATE
  50. ASCORBIC ACID [Concomitant]
     Active Substance: ASCORBIC ACID
     Indication: Product used for unknown indication
     Dosage: UNK UNK, QD
  51. ASCORBIC ACID [Concomitant]
     Active Substance: ASCORBIC ACID
     Dosage: UNK UNK, QD
  52. ACTEMRA [Concomitant]
     Active Substance: TOCILIZUMAB
     Indication: Rheumatoid arthritis
     Dosage: UNK
  53. ACTEMRA [Concomitant]
     Active Substance: TOCILIZUMAB
     Dosage: 8 MG/KG
     Route: 042
  54. ADALIMUMAB [Concomitant]
     Active Substance: ADALIMUMAB
     Indication: Rheumatoid arthritis
     Dosage: UNK
     Route: 058
  55. FERROUS FUMARATE [Concomitant]
     Active Substance: FERROUS FUMARATE
     Indication: Product used for unknown indication
     Dosage: UNK
  56. FERROUS FUMARATE [Concomitant]
     Active Substance: FERROUS FUMARATE
     Dosage: UNK, QD
  57. FERROUS FUMARATE [Concomitant]
     Active Substance: FERROUS FUMARATE
  58. FERROUS FUMARATE [Concomitant]
     Active Substance: FERROUS FUMARATE
  59. FOLIC ACID [Concomitant]
     Active Substance: FOLIC ACID
     Indication: Product used for unknown indication
     Dosage: 5 MILLIGRAM, Q2WK
  60. FOLIC ACID [Concomitant]
     Active Substance: FOLIC ACID
     Dosage: 5 MILLIGRAM, BID
  61. FOLIC ACID [Concomitant]
     Active Substance: FOLIC ACID
     Dosage: 400 MILLIGRAM
  62. FOLIC ACID [Concomitant]
     Active Substance: FOLIC ACID
     Dosage: 5 MILLIGRAM QWK
  63. FOLIC ACID [Concomitant]
     Active Substance: FOLIC ACID
     Dosage: 5 MILLIGRAM, 2 EVERY 1 WEEK
  64. FOLIC ACID [Concomitant]
     Active Substance: FOLIC ACID
     Dosage: 400 MU
  65. FOLIC ACID [Concomitant]
     Active Substance: FOLIC ACID
     Dosage: 2 MILLIGRAM
  66. FOLIC ACID [Concomitant]
     Active Substance: FOLIC ACID
  67. FOLIC ACID [Concomitant]
     Active Substance: FOLIC ACID
  68. FOLIC ACID [Concomitant]
     Active Substance: FOLIC ACID
  69. FOLIC ACID [Concomitant]
     Active Substance: FOLIC ACID
  70. FOLIC ACID [Concomitant]
     Active Substance: FOLIC ACID
  71. FOLIC ACID [Concomitant]
     Active Substance: FOLIC ACID
  72. FOLIC ACID [Concomitant]
     Active Substance: FOLIC ACID
  73. FOLIC ACID [Concomitant]
     Active Substance: FOLIC ACID
  74. LEFLUNOMIDE [Concomitant]
     Active Substance: LEFLUNOMIDE
     Indication: Rheumatoid arthritis
     Dosage: 20 MILLIGRAM, QD
     Route: 048
  75. HYDROXYCHLOROQUINE [Concomitant]
     Active Substance: HYDROXYCHLOROQUINE
     Indication: Rheumatoid arthritis
     Dosage: 400 MILLIGRAM, QWK
  76. HYDROXYCHLOROQUINE [Concomitant]
     Active Substance: HYDROXYCHLOROQUINE
     Dosage: 40 MILLIGRAM, QWK
  77. HYDROXYCHLOROQUINE [Concomitant]
     Active Substance: HYDROXYCHLOROQUINE
     Dosage: 200 MILLIGRAM,BID
  78. HYDROXYCHLOROQUINE [Concomitant]
     Active Substance: HYDROXYCHLOROQUINE
     Dosage: 400 MILLIGRAM, QD
     Route: 048
  79. XELJANZ [Concomitant]
     Active Substance: TOFACITINIB CITRATE
     Indication: Rheumatoid arthritis
  80. PANTOPRAZOLE [Concomitant]
     Active Substance: PANTOPRAZOLE
     Indication: Rheumatoid arthritis
     Dosage: 40 MILLIGRAM, QD
  81. PANTOPRAZOLE [Concomitant]
     Active Substance: PANTOPRAZOLE
     Dosage: 40 MILLIGRAM, QD
     Route: 048
  82. PANTOPRAZOLE [Concomitant]
     Active Substance: PANTOPRAZOLE
     Route: 048
  83. PANTOPRAZOLE [Concomitant]
     Active Substance: PANTOPRAZOLE
     Route: 048
  84. PANTOPRAZOLE SODIUM [Concomitant]
     Active Substance: PANTOPRAZOLE SODIUM
     Indication: Product used for unknown indication
     Dosage: 40 MILLIGRAM, QD
  85. NAPROXEN [Concomitant]
     Active Substance: NAPROXEN
     Indication: Product used for unknown indication
     Dosage: 1000 MILLIGRAM, QD
     Route: 048
  86. NAPROXEN [Concomitant]
     Active Substance: NAPROXEN
     Dosage: 500 MILLIGRAM, BID
     Route: 048
  87. NAPROXEN [Concomitant]
     Active Substance: NAPROXEN
     Dosage: 100 MILLIGRAM, QD
     Route: 048
  88. NAPROXEN [Concomitant]
     Active Substance: NAPROXEN
     Route: 048
  89. VITAMIN C [Concomitant]
     Active Substance: ASCORBIC ACID
     Indication: Product used for unknown indication
     Dosage: UNK
  90. VITAMIN C [Concomitant]
     Active Substance: ASCORBIC ACID
  91. VITAMIN C [Concomitant]
     Active Substance: ASCORBIC ACID
  92. VITAMIN C [Concomitant]
     Active Substance: ASCORBIC ACID
  93. VITAMIN C [Concomitant]
     Active Substance: ASCORBIC ACID
  94. VITAMIN C [Concomitant]
     Active Substance: ASCORBIC ACID
  95. VITAMIN C [Concomitant]
     Active Substance: ASCORBIC ACID
  96. ERELZI [Concomitant]
     Active Substance: ETANERCEPT-SZZS
     Indication: Rheumatoid arthritis
     Route: 058
  97. ERELZI [Concomitant]
     Active Substance: ETANERCEPT-SZZS
     Route: 058
  98. ERELZI [Concomitant]
     Active Substance: ETANERCEPT-SZZS
     Route: 058
  99. PANTOPRAZOLE SODIUM [Concomitant]
     Active Substance: PANTOPRAZOLE SODIUM
     Indication: Product used for unknown indication
     Dosage: 40 MILLIGRAM, 1 EVERY 1 DAYS
  100. PREDNISONE [Concomitant]
     Active Substance: PREDNISONE
     Indication: Rheumatoid arthritis
     Dosage: 5 MILLIGRAM, QD
  101. NAPROXEN SODIUM [Concomitant]
     Active Substance: NAPROXEN\NAPROXEN SODIUM
     Indication: Rheumatoid arthritis
     Dosage: 100 MILLIGRAM, QD
     Route: 048
  102. NAPROXEN SODIUM [Concomitant]
     Active Substance: NAPROXEN\NAPROXEN SODIUM
     Dosage: 500 MILLIGRAM, BID
     Route: 048
  103. NAPROXEN SODIUM [Concomitant]
     Active Substance: NAPROXEN\NAPROXEN SODIUM
     Route: 048
  104. NAPROXEN SODIUM [Concomitant]
     Active Substance: NAPROXEN\NAPROXEN SODIUM
  105. NAPROXEN SODIUM [Concomitant]
     Active Substance: NAPROXEN\NAPROXEN SODIUM
  106. NAPROXEN SODIUM [Concomitant]
     Active Substance: NAPROXEN\NAPROXEN SODIUM
  107. NAPROXEN SODIUM [Concomitant]
     Active Substance: NAPROXEN\NAPROXEN SODIUM
     Route: 048
  108. NAPROXEN SODIUM [Concomitant]
     Active Substance: NAPROXEN\NAPROXEN SODIUM
     Route: 048
  109. NAPROXEN SODIUM [Concomitant]
     Active Substance: NAPROXEN\NAPROXEN SODIUM
     Route: 048
  110. NAPROXEN SODIUM [Concomitant]
     Active Substance: NAPROXEN\NAPROXEN SODIUM
     Route: 048
  111. NAPROXEN SODIUM [Concomitant]
     Active Substance: NAPROXEN\NAPROXEN SODIUM
     Route: 048
  112. NAPROXEN SODIUM [Concomitant]
     Active Substance: NAPROXEN\NAPROXEN SODIUM
     Route: 048
  113. NAPROXEN SODIUM [Concomitant]
     Active Substance: NAPROXEN\NAPROXEN SODIUM
     Route: 048
  114. NAPROXEN SODIUM [Concomitant]
     Active Substance: NAPROXEN\NAPROXEN SODIUM
  115. NAPROXEN SODIUM [Concomitant]
     Active Substance: NAPROXEN\NAPROXEN SODIUM
  116. NAPROXEN SODIUM [Concomitant]
     Active Substance: NAPROXEN\NAPROXEN SODIUM
  117. METHOTREXATE [Concomitant]
     Active Substance: METHOTREXATE
     Indication: Rheumatoid arthritis
     Dosage: 25 MICROGRAM, QWK
     Route: 014
  118. METHOTREXATE [Concomitant]
     Active Substance: METHOTREXATE
  119. METHOTREXATE [Concomitant]
     Active Substance: METHOTREXATE
     Dosage: CYCLICAL
     Route: 048
  120. METHOTREXATE [Concomitant]
     Active Substance: METHOTREXATE
     Route: 048
  121. METHOTREXATE [Concomitant]
     Active Substance: METHOTREXATE
     Route: 048
  122. METHOTREXATE [Concomitant]
     Active Substance: METHOTREXATE
     Route: 048
  123. METHOTREXATE [Concomitant]
     Active Substance: METHOTREXATE
     Route: 048
  124. METHOTREXATE [Concomitant]
     Active Substance: METHOTREXATE
     Route: 048
  125. METHOTREXATE [Concomitant]
     Active Substance: METHOTREXATE
     Route: 048
  126. METHOTREXATE [Concomitant]
     Active Substance: METHOTREXATE
  127. ATENOLOL AND CHLORTHALIDONE [Concomitant]
     Active Substance: ATENOLOL\CHLORTHALIDONE
     Indication: Rheumatoid arthritis
  128. CELEBREX [Concomitant]
     Active Substance: CELECOXIB
     Indication: Rheumatoid arthritis
     Dosage: 200 MILLIGRAM, QD
     Route: 048
  129. CELECOXIB [Concomitant]
     Active Substance: CELECOXIB
     Indication: Rheumatoid arthritis
     Dosage: 200 MILLIGRAM, QD
     Route: 048
  130. CELECOXIB [Concomitant]
     Active Substance: CELECOXIB
     Indication: Arthritis
     Route: 048
  131. CELECOXIB [Concomitant]
     Active Substance: CELECOXIB
  132. CHLORTHALIDONE [Concomitant]
     Active Substance: CHLORTHALIDONE
     Indication: Rheumatoid arthritis
  133. FERROUS FUMARATE [Concomitant]
     Active Substance: FERROUS FUMARATE
     Indication: Product used for unknown indication
  134. FERROUS FUMARATE\FOLIC ACID [Concomitant]
     Active Substance: FERROUS FUMARATE\FOLIC ACID
     Indication: Product used for unknown indication
  135. FERROUS FUMARATE\FOLIC ACID [Concomitant]
     Active Substance: FERROUS FUMARATE\FOLIC ACID
  136. FERROUS FUMARATE\FOLIC ACID [Concomitant]
     Active Substance: FERROUS FUMARATE\FOLIC ACID
  137. NAPROXEN [Concomitant]
     Active Substance: NAPROXEN
     Indication: Product used for unknown indication
     Route: 048
  138. NAPROXEN [Concomitant]
     Active Substance: NAPROXEN
     Indication: Uveitis
     Route: 048
  139. NAPROXEN [Concomitant]
     Active Substance: NAPROXEN
     Indication: Juvenile idiopathic arthritis
     Route: 048
  140. NAPROXEN [Concomitant]
     Active Substance: NAPROXEN
     Route: 048
  141. NAPROXEN [Concomitant]
     Active Substance: NAPROXEN
     Route: 048
  142. NAPROXEN [Concomitant]
     Active Substance: NAPROXEN
     Route: 048
  143. NAPROXEN [Concomitant]
     Active Substance: NAPROXEN
     Route: 048
  144. NAPROXEN [Concomitant]
     Active Substance: NAPROXEN
     Route: 048
  145. NAPROXEN [Concomitant]
     Active Substance: NAPROXEN
     Route: 048
  146. NAPROXEN [Concomitant]
     Active Substance: NAPROXEN
     Route: 048
  147. PANTOPRAZOLE SODIUM [Concomitant]
     Active Substance: PANTOPRAZOLE SODIUM
     Indication: Rheumatoid arthritis
  148. PANTOPRAZOLE SODIUM [Concomitant]
     Active Substance: PANTOPRAZOLE SODIUM
  149. PANTOPRAZOLE SODIUM [Concomitant]
     Active Substance: PANTOPRAZOLE SODIUM
  150. PANTOPRAZOLE SODIUM [Concomitant]
     Active Substance: PANTOPRAZOLE SODIUM
  151. PANTOPRAZOLE SODIUM [Concomitant]
     Active Substance: PANTOPRAZOLE SODIUM
  152. TOCILIZUMAB [Concomitant]
     Active Substance: TOCILIZUMAB
     Indication: Rheumatoid arthritis
  153. MOXIFLOXACIN HYDROCHLORIDE [Concomitant]
     Active Substance: MOXIFLOXACIN HYDROCHLORIDE\MOXIFLOXACIN HYDROCHLORIDE MONOHYDRATE
     Indication: Rheumatoid arthritis
     Route: 058
  154. ASPIRIN [Concomitant]
     Active Substance: ASPIRIN
     Indication: Product used for unknown indication
  155. ATENOLOL\CHLORTHALIDONE [Concomitant]
     Active Substance: ATENOLOL\CHLORTHALIDONE
     Indication: Product used for unknown indication
  156. AVAPRO [Concomitant]
     Active Substance: IRBESARTAN
     Indication: Product used for unknown indication
  157. HUMALOG [Concomitant]
     Active Substance: INSULIN LISPRO
     Indication: Product used for unknown indication
  158. INSULIN PORK [Concomitant]
     Active Substance: INSULIN PORK\INSULIN PURIFIED PORK
     Indication: Product used for unknown indication
  159. LANTUS [Concomitant]
     Active Substance: INSULIN GLARGINE
     Indication: Product used for unknown indication
     Route: 058
  160. METFORMIN HYDROCHLORIDE [Concomitant]
     Active Substance: METFORMIN HYDROCHLORIDE
     Indication: Product used for unknown indication
  161. SIMPONI [Concomitant]
     Active Substance: GOLIMUMAB
     Indication: Product used for unknown indication
     Route: 058
  162. DICLOFENAC SODIUM [Concomitant]
     Active Substance: DICLOFENAC\DICLOFENAC SODIUM
     Indication: Rheumatoid arthritis

REACTIONS (37)
  - Liver disorder [Not Recovered/Not Resolved]
  - Myalgia [Not Recovered/Not Resolved]
  - Rheumatoid lung [Not Recovered/Not Resolved]
  - Arthralgia [Not Recovered/Not Resolved]
  - C-reactive protein increased [Not Recovered/Not Resolved]
  - Disability [Not Recovered/Not Resolved]
  - Drug ineffective [Not Recovered/Not Resolved]
  - Haematocrit decreased [Not Recovered/Not Resolved]
  - Haemoglobin decreased [Not Recovered/Not Resolved]
  - Joint swelling [Not Recovered/Not Resolved]
  - Musculoskeletal pain [Not Recovered/Not Resolved]
  - Pain in extremity [Not Recovered/Not Resolved]
  - Peripheral swelling [Not Recovered/Not Resolved]
  - Rash [Not Recovered/Not Resolved]
  - Red blood cell count decreased [Not Recovered/Not Resolved]
  - Red blood cell sedimentation rate abnormal [Not Recovered/Not Resolved]
  - Drug hypersensitivity [Not Recovered/Not Resolved]
  - C-reactive protein abnormal [Not Recovered/Not Resolved]
  - Arthropathy [Not Recovered/Not Resolved]
  - Fall [Not Recovered/Not Resolved]
  - Fatigue [Not Recovered/Not Resolved]
  - Impaired healing [Not Recovered/Not Resolved]
  - Multiple fractures [Not Recovered/Not Resolved]
  - Pain [Not Recovered/Not Resolved]
  - Synovitis [Not Recovered/Not Resolved]
  - Osteoporosis [Not Recovered/Not Resolved]
  - Treatment failure [Not Recovered/Not Resolved]
  - Keratitis [Not Recovered/Not Resolved]
  - Off label use [Unknown]
  - Inflammatory marker increased [Not Recovered/Not Resolved]
  - Hypersensitivity [Not Recovered/Not Resolved]
  - Condition aggravated [Not Recovered/Not Resolved]
  - Rheumatoid arthritis [Not Recovered/Not Resolved]
  - Drug-induced liver injury [Not Recovered/Not Resolved]
  - Drug intolerance [Not Recovered/Not Resolved]
  - Musculoskeletal stiffness [Not Recovered/Not Resolved]
  - Femur fracture [Not Recovered/Not Resolved]
